FAERS Safety Report 14749207 (Version 2)
Quarter: 2018Q2

REPORT INFORMATION
  Report Type: Spontaneous
  Country: US (occurrence: US)
  Receive Date: 20180411
  Receipt Date: 20180629
  Transmission Date: 20180711
  Serious: Yes (Other)
  Sender: FDA-Public Use
  Company Number: US-AMGEN-USASP2018016896

PATIENT
  Age: 75 Year
  Sex: Female

DRUGS (3)
  1. VITAMIN D3 [Concomitant]
     Active Substance: CHOLECALCIFEROL
     Dosage: 4000-6000 IU, QD
  2. BONE CALCIUM [Concomitant]
     Dosage: 6 DF, UNK
  3. PROLIA [Suspect]
     Active Substance: DENOSUMAB
     Indication: OSTEOPOROSIS POSTMENOPAUSAL
     Dosage: 60 MG, Q6MO
     Route: 065
     Dates: start: 201706, end: 201801

REACTIONS (11)
  - Pain in extremity [Not Recovered/Not Resolved]
  - Depression [Unknown]
  - Myalgia [Unknown]
  - Arthralgia [Unknown]
  - Fracture pain [Unknown]
  - Pain [Not Recovered/Not Resolved]
  - Hip arthroplasty [Unknown]
  - Feeling abnormal [Unknown]
  - Gait disturbance [Unknown]
  - Pain in jaw [Unknown]
  - Quality of life decreased [Unknown]
